FAERS Safety Report 7558065-4 (Version None)
Quarter: 2011Q2

REPORT INFORMATION
  Report Type: 
  Country: None (occurrence: None)
  Receive Date: 20110620
  Receipt Date: 20110608
  Transmission Date: 20111010
  Serious: Yes (Hospitalization)
  Sender: FDA-Public Use
  Company Number: FR-UCBSA-034868

PATIENT
  Sex: Male

DRUGS (12)
  1. BISOPROLOL FUMARATE [Concomitant]
  2. ASPIRIN [Concomitant]
  3. ALDACTONE [Concomitant]
  4. XANAX [Concomitant]
     Dosage: AT NIGHT
  5. POTASSIUM CHLORIDE [Concomitant]
     Dosage: 2 CAPSULES DAILY
  6. NEXIUM [Concomitant]
  7. LASIX [Concomitant]
  8. KEPPRA [Suspect]
     Indication: CONVULSION
     Route: 048
     Dates: start: 20110404, end: 20110509
  9. ALFUZOSIN HCL [Concomitant]
  10. ACETAMINOPHEN [Concomitant]
     Dosage: IF NEEDED
  11. CRESTOR [Suspect]
     Route: 048
     Dates: start: 20101001, end: 20110509
  12. RAMIPRIL [Concomitant]

REACTIONS (11)
  - CYTOLYTIC HEPATITIS [None]
  - HEMIPLEGIA [None]
  - JAUNDICE CHOLESTATIC [None]
  - HEPATIC FAILURE [None]
  - MENINGITIS ASEPTIC [None]
  - ASTHENIA [None]
  - ABDOMINAL PAIN [None]
  - CEREBRAL ISCHAEMIA [None]
  - HEADACHE [None]
  - COMA [None]
  - CONVULSION [None]
